FAERS Safety Report 15208881 (Version 1)
Quarter: 2018Q3

REPORT INFORMATION
  Report Type: Spontaneous
  Country: DE (occurrence: DE)
  Receive Date: 20180727
  Receipt Date: 20180727
  Transmission Date: 20181010
  Serious: Yes (Other)
  Sender: FDA-Public Use
  Company Number: DE-ELI_LILLY_AND_COMPANY-DE201807008071

PATIENT
  Sex: Female

DRUGS (1)
  1. TALTZ [Suspect]
     Active Substance: IXEKIZUMAB
     Indication: PRODUCT USED FOR UNKNOWN INDICATION
     Dosage: 80 MG, UNKNOWN
     Route: 058
     Dates: start: 201707

REACTIONS (8)
  - Skin fissures [Unknown]
  - Fatigue [Unknown]
  - Palatal disorder [Unknown]
  - Swollen tongue [Unknown]
  - Pruritus genital [Unknown]
  - Dysuria [Unknown]
  - Depressed mood [Unknown]
  - Streptococcal infection [Unknown]
